FAERS Safety Report 24456590 (Version 1)
Quarter: 2024Q4

REPORT INFORMATION
  Report Type: Spontaneous
  Country: US (occurrence: US)
  Receive Date: 20241017
  Receipt Date: 20241017
  Transmission Date: 20250115
  Serious: Yes (Hospitalization, Other)
  Sender: JOHNSON AND JOHNSON
  Company Number: US-JNJFOC-20241040933

PATIENT
  Age: 81 Year
  Sex: Male
  Weight: 84.4 kg

DRUGS (18)
  1. XARELTO [Suspect]
     Active Substance: RIVAROXABAN
     Indication: Product used for unknown indication
     Route: 048
     Dates: end: 2024
  2. TYVASO [Suspect]
     Active Substance: TREPROSTINIL
     Indication: Pulmonary arterial hypertension
     Dosage: 3 BREATHS
     Route: 065
     Dates: start: 202409
  3. TYVASO [Suspect]
     Active Substance: TREPROSTINIL
     Dosage: 12 G (2 BREATHS)
     Route: 065
  4. TYVASO [Suspect]
     Active Substance: TREPROSTINIL
     Dosage: 6  G (1 BREATH)
     Route: 065
     Dates: start: 20241001
  5. MUCUS DM MAX [Concomitant]
     Active Substance: DEXTROMETHORPHAN HYDROBROMIDE\GUAIFENESIN
  6. ESBRIET [Concomitant]
     Active Substance: PIRFENIDONE
  7. TAMSULOSIN HYDROCHLORIDE [Concomitant]
     Active Substance: TAMSULOSIN HYDROCHLORIDE
  8. VITAMIN E [Concomitant]
     Active Substance: .ALPHA.-TOCOPHEROL
  9. VITAMIN D3 [Concomitant]
     Active Substance: CHOLECALCIFEROL
  10. MEMANTINE [Concomitant]
     Active Substance: MEMANTINE
  11. SILDENAFIL CITRATE [Concomitant]
     Active Substance: SILDENAFIL CITRATE
  12. METOPROLOL SUCCINATE [Concomitant]
     Active Substance: METOPROLOL SUCCINATE
  13. ASPIRIN [Concomitant]
     Active Substance: ASPIRIN
  14. NATROL [Concomitant]
  15. ATORVASTATIN CALCIUM [Concomitant]
     Active Substance: ATORVASTATIN CALCIUM
  16. BUMETANIDE [Concomitant]
     Active Substance: BUMETANIDE
  17. OXYGEN [Concomitant]
     Active Substance: OXYGEN
  18. DONEPEZIL HYDROCHLORIDE [Concomitant]
     Active Substance: DONEPEZIL HYDROCHLORIDE

REACTIONS (9)
  - Dementia [Unknown]
  - Haemoptysis [Unknown]
  - Hypotension [Unknown]
  - Cough [Unknown]
  - Oropharyngeal pain [Unknown]
  - Fall [Recovered/Resolved with Sequelae]
  - Head injury [Unknown]
  - Rhinorrhoea [Unknown]
  - Blood pressure fluctuation [Unknown]

NARRATIVE: CASE EVENT DATE: 20240101
